FAERS Safety Report 8908934 (Version 1)
Quarter: 2012Q4

REPORT INFORMATION
  Report Type: 
  Country: US (occurrence: US)
  Receive Date: 20121114
  Receipt Date: 20121114
  Transmission Date: 20130627
  Serious: No
  Sender: FDA-Public Use
  Company Number: US-MYLANLABS-2011S1015149

PATIENT
  Sex: Female

DRUGS (4)
  1. TRIAMTERENE + HYDROCHLOROTHIAZIDE [Suspect]
     Route: 048
     Dates: start: 201102
  2. TRIAMTERENE + HYDROCHLOROTHIAZIDE [Suspect]
     Route: 048
     Dates: start: 201102
  3. TRIAMTERENE + HYDROCHLOROTHIAZIDE [Suspect]
  4. TRIAMTERENE + HYDROCHLOROTHIAZIDE [Suspect]

REACTIONS (1)
  - Chromaturia [Not Recovered/Not Resolved]
